FAERS Safety Report 13579234 (Version 7)
Quarter: 2020Q4

REPORT INFORMATION
  Report Type: Spontaneous
  Country: US (occurrence: US)
  Receive Date: 20170525
  Receipt Date: 20201029
  Transmission Date: 20210113
  Serious: Yes (Congenital Anomaly, Other)
  Sender: FDA-Public Use
  Company Number: PHEH2017US015472

PATIENT
  Sex: Male

DRUGS (1)
  1. ZOFRAN [Suspect]
     Active Substance: ONDANSETRON HYDROCHLORIDE
     Indication: FOETAL EXPOSURE DURING PREGNANCY
     Dosage: MOTHER DOSE: 04 MG, UNK
     Route: 064

REACTIONS (22)
  - Major depression [Unknown]
  - Foetal exposure during pregnancy [Unknown]
  - Cardiac murmur [Unknown]
  - Anxiety [Unknown]
  - Disturbance in attention [Unknown]
  - Cleft lip [Unknown]
  - Congenital central nervous system anomaly [Unknown]
  - Headache [Unknown]
  - Congenital cardiovascular anomaly [Unknown]
  - Hydrocephalus [Unknown]
  - Nose deformity [Unknown]
  - Heart disease congenital [Unknown]
  - Cerebral ventricle dilatation [Unknown]
  - Injury [Unknown]
  - Hernia [Unknown]
  - Porencephaly [Unknown]
  - Ear infection [Unknown]
  - Concussion [Unknown]
  - Memory impairment [Unknown]
  - Cleft palate [Unknown]
  - Brain malformation [Unknown]
  - Post concussion syndrome [Unknown]

NARRATIVE: CASE EVENT DATE: 2000
